FAERS Safety Report 8844071 (Version 1)
Quarter: 2012Q4

REPORT INFORMATION
  Report Type: Report from Study
  Country: NL (occurrence: NL)
  Receive Date: 20121017
  Receipt Date: 20121017
  Transmission Date: 20130627
  Serious: Yes (Hospitalization)
  Sender: FDA-Public Use
  Company Number: NL-US-EMD SERONO, INC.-7167373

PATIENT
  Age: 72 None
  Sex: Female
  Weight: 60 kg

DRUGS (18)
  1. REBIF [Suspect]
     Indication: MULTIPLE SCLEROSIS
     Route: 058
     Dates: start: 2003, end: 20121005
  2. AMITRYPTILINE (AMITRIPTYLINE) [Concomitant]
     Indication: PAIN
     Route: 048
  3. AMLODIPINE [Concomitant]
     Indication: CARDIAC FAILURE
     Route: 048
     Dates: start: 1996
  4. FENPROCOUMON [Concomitant]
     Indication: ANTICOAGULANT THERAPY
     Route: 048
     Dates: start: 1996
  5. FUROSEMIDE [Concomitant]
     Indication: FLUID RETENTION
     Route: 048
  6. LOSARTAN [Concomitant]
     Indication: CARDIAC FAILURE
     Route: 048
     Dates: start: 1996
  7. NIFEDIPINE [Concomitant]
     Indication: CARDIAC FAILURE
     Route: 048
     Dates: start: 1996
  8. PERINODOPRIL (PERINDOPRIL) [Concomitant]
     Indication: CARDIAC FAILURE
     Route: 048
     Dates: start: 1996
  9. SALBUTAMOL INH POWDER DISKUS [Concomitant]
     Indication: ASTHMA
     Dosage: 200mcg/per do  60 do
  10. SALBUTAMOL INH POWDER DISKUS [Concomitant]
     Indication: CHRONIC OBSTRUCTIVE PULMONARY DISEASE
  11. SALMETEROL [Concomitant]
     Indication: ASTHMA
     Dosage: 25/250mcg per do,  20 do
  12. SALMETEROL [Concomitant]
     Indication: CHRONIC OBSTRUCTIVE PULMONARY DISEASE
  13. FLUTICASON [Concomitant]
     Indication: ASTHMA
     Dosage: 25/250mcg per do,  20 do
  14. FLUTICASON [Concomitant]
     Indication: CHRONIC OBSTRUCTIVE PULMONARY DISEASE
  15. SIMVASTATINE [Concomitant]
     Indication: PROPHYLAXIS
     Route: 048
     Dates: start: 1996
  16. SPIRONOLACTON [Concomitant]
     Indication: FLUID RETENTION
     Route: 048
  17. ZOPICLON [Concomitant]
     Indication: INSOMNIA
     Route: 048
  18. NITROFURANTOINE (NITROFURANTOIN) [Concomitant]
     Indication: ADVERSE EVENT

REACTIONS (4)
  - Pneumonia [Not Recovered/Not Resolved]
  - Cystitis [Not Recovered/Not Resolved]
  - Herpes zoster [Not Recovered/Not Resolved]
  - Asthenia [Not Recovered/Not Resolved]
